FAERS Safety Report 5941808-0 (Version None)
Quarter: 2008Q4

REPORT INFORMATION
  Report Type: 
  Country: None (occurrence: None)
  Receive Date: 20081105
  Receipt Date: 20081030
  Transmission Date: 20090506
  Serious: Yes (Hospitalization)
  Sender: FDA-Public Use
  Company Number: PHEH2008US09814

PATIENT
  Sex: Female
  Weight: 63.492 kg

DRUGS (3)
  1. EXELON [Suspect]
     Indication: AMNESIA
     Dosage: 4.6 MG, QD
     Route: 062
     Dates: start: 20081027, end: 20081028
  2. LOTREL [Concomitant]
  3. TOPROL-XL [Concomitant]

REACTIONS (6)
  - CHEST DISCOMFORT [None]
  - DIARRHOEA [None]
  - LOSS OF CONSCIOUSNESS [None]
  - MYOCARDIAL INFARCTION [None]
  - NAUSEA [None]
  - VOMITING [None]
